FAERS Safety Report 13264564 (Version 1)
Quarter: 2017Q1

REPORT INFORMATION
  Report Type: Spontaneous
  Country: US (occurrence: US)
  Receive Date: 20170223
  Receipt Date: 20170223
  Transmission Date: 20170428
  Serious: Yes (Other)
  Sender: FDA-Public Use
  Company Number: US-MYLANLABS-2017M1009881

PATIENT

DRUGS (9)
  1. ETOPOSIDE. [Suspect]
     Active Substance: ETOPOSIDE
     Indication: MEDIASTINAL MASS
     Dosage: 100 MG/M2 X 5 DAYS
     Route: 065
  2. TACROLIMUS. [Suspect]
     Active Substance: TACROLIMUS
     Indication: PROPHYLAXIS AGAINST GRAFT VERSUS HOST DISEASE
     Route: 065
  3. NELARABINE [Concomitant]
     Active Substance: NELARABINE
     Indication: PRODUCT USED FOR UNKNOWN INDICATION
     Route: 065
  4. FLUDARABINE [Suspect]
     Active Substance: FLUDARABINE PHOSPHATE
     Indication: PRODUCT USED FOR UNKNOWN INDICATION
     Route: 065
  5. BUSULFAN. [Suspect]
     Active Substance: BUSULFAN
     Indication: PRODUCT USED FOR UNKNOWN INDICATION
     Route: 042
  6. METHOTREXATE. [Suspect]
     Active Substance: METHOTREXATE
     Indication: PROPHYLAXIS AGAINST GRAFT VERSUS HOST DISEASE
     Dosage: 5 MG/M2/DOSE
     Route: 065
  7. CYTOXAN [Suspect]
     Active Substance: CYCLOPHOSPHAMIDE
     Indication: MEDIASTINAL MASS
     Dosage: 500 MG/M2
     Route: 065
  8. CYTOXAN [Suspect]
     Active Substance: CYCLOPHOSPHAMIDE
     Indication: LEUKAEMIA
     Dosage: 600MG/M2 SINGLE DOSE
     Route: 065
  9. INTERFERON ALPHA 1-A [Concomitant]
     Active Substance: INTERFERON ALFA-1A
     Indication: PRODUCT USED FOR UNKNOWN INDICATION
     Dosage: 3 MILLION UNITS MWF
     Route: 065

REACTIONS (4)
  - Drug-induced liver injury [Unknown]
  - Non-alcoholic steatohepatitis [Unknown]
  - Febrile neutropenia [Unknown]
  - Transaminases increased [Unknown]
